FAERS Safety Report 23503386 (Version 4)
Quarter: 2024Q2

REPORT INFORMATION
  Report Type: Report from Study
  Country: CA (occurrence: CA)
  Receive Date: 20240208
  Receipt Date: 20240411
  Transmission Date: 20240716
  Serious: Yes (Other)
  Sender: FDA-Public Use
  Company Number: CA-JNJFOC-20240214394

PATIENT
  Age: 76 Year
  Sex: Female

DRUGS (11)
  1. SIMPONI [Suspect]
     Active Substance: GOLIMUMAB
     Indication: Rheumatoid arthritis
     Route: 058
     Dates: start: 20191128
  2. SIMPONI [Suspect]
     Active Substance: GOLIMUMAB
     Route: 058
  3. SIMPONI [Suspect]
     Active Substance: GOLIMUMAB
     Route: 058
  4. NEXIUM [Concomitant]
     Active Substance: ESOMEPRAZOLE MAGNESIUM
     Indication: Product used for unknown indication
  5. METHOTREXATE [Concomitant]
     Active Substance: METHOTREXATE
  6. METHOTREXATE [Concomitant]
     Active Substance: METHOTREXATE
  7. CELEBREX [Concomitant]
     Active Substance: CELECOXIB
     Dosage: 1-2 TABS AS NEEDED
  8. CHOLECALCIFEROL [Concomitant]
     Active Substance: CHOLECALCIFEROL
     Dosage: 1000 IU DAILY
  9. FOLIC ACID [Concomitant]
     Active Substance: FOLIC ACID
  10. OMEGA-3 FATTY ACIDS [Concomitant]
     Active Substance: OMEGA-3 FATTY ACIDS
  11. VITAMIN C [Concomitant]
     Active Substance: ASCORBIC ACID

REACTIONS (4)
  - Lower respiratory tract infection [Recovered/Resolved]
  - Hypersensitivity [Recovered/Resolved]
  - Rash [Unknown]
  - Furuncle [Recovered/Resolved]

NARRATIVE: CASE EVENT DATE: 20240103
